FAERS Safety Report 7949580-X (Version None)
Quarter: 2011Q4

REPORT INFORMATION
  Report Type: 
  Country: None (occurrence: None)
  Receive Date: 20111130
  Receipt Date: 20111128
  Transmission Date: 20120403
  Serious: Yes (Other)
  Sender: FDA-Public Use
  Company Number: US-VERTEX PHARMACEUTICALS INC.-AE-2011-002450

PATIENT
  Age: 48 Year
  Sex: Female

DRUGS (11)
  1. FLEXERIL [Concomitant]
  2. PREGABALIN [Concomitant]
  3. RIBAVIRIN [Concomitant]
     Indication: HEPATITIS C
     Dates: end: 20111011
  4. PRILOSEC [Concomitant]
  5. PEGASYS [Concomitant]
     Indication: HEPATITIS C
     Dates: end: 20111011
  6. LEVOTHYROXINE SODIUM [Concomitant]
  7. KLONOPIN [Concomitant]
  8. ZOLOFT [Concomitant]
  9. ALENDRONATE SODIUM [Concomitant]
  10. INCIVEK [Suspect]
     Indication: HEPATITIS C
     Dates: end: 20111011
  11. ACTONEL [Concomitant]

REACTIONS (1)
  - ANAEMIA [None]
